FAERS Safety Report 4323157-X (Version None)
Quarter: 2004Q1

REPORT INFORMATION
  Report Type: 
  Country: None (occurrence: None)
  Receive Date: 20040322
  Receipt Date: 20040308
  Transmission Date: 20041129
  Serious: Yes (Life-Threatening, Hospitalization)
  Sender: FDA-Public Use
  Company Number: US-JNJFOC-20040301958

PATIENT
  Age: 51 Year
  Sex: Female

DRUGS (3)
  1. DURAGESIC [Suspect]
     Indication: PAIN
     Dosage: 25 UG/HR, 1 IN 72 HOUR, TRANSDERMAL
     Route: 062
     Dates: start: 20030801
  2. ATIVAN [Concomitant]
  3. . [Concomitant]

REACTIONS (3)
  - CHEST PAIN [None]
  - THYROID GLAND CANCER [None]
  - THYROTOXIC CRISIS [None]
